FAERS Safety Report 5640240-7 (Version None)
Quarter: 2008Q1

REPORT INFORMATION
  Report Type: 
  Country: None (occurrence: None)
  Receive Date: 20080227
  Receipt Date: 20080219
  Transmission Date: 20080703
  Serious: No
  Sender: FDA-Public Use
  Company Number: US-BAXTER-2008BH001203

PATIENT
  Age: 54 Year
  Sex: Female

DRUGS (2)
  1. HEPARIN SODIUM [Suspect]
     Indication: CENTRAL VENOUS CATHETERISATION
     Route: 042
     Dates: start: 20080208, end: 20080208
  2. CHEMOTHERAPY [Concomitant]
     Indication: BREAST CANCER
     Dosage: DOSE UNIT:UNKNOWN
     Route: 065

REACTIONS (2)
  - BACK PAIN [None]
  - CHEST DISCOMFORT [None]
